FAERS Safety Report 12182958 (Version 12)
Quarter: 2017Q2

REPORT INFORMATION
  Report Type: Report from Study
  Country: ZA (occurrence: ZA)
  Receive Date: 20160316
  Receipt Date: 20170615
  Transmission Date: 20170830
  Serious: Yes (Hospitalization, Other)
  Sender: FDA-Public Use
  Company Number: PHHY2016ZA033433

PATIENT
  Age: 26 Year
  Sex: Female

DRUGS (5)
  1. TREPILINE [Concomitant]
     Active Substance: AMITRIPTYLINE
     Indication: PRODUCT USED FOR UNKNOWN INDICATION
     Dosage: 5 MG, NOCTE
     Route: 065
  2. TEGRETOL [Concomitant]
     Active Substance: CARBAMAZEPINE
     Indication: PRODUCT USED FOR UNKNOWN INDICATION
     Dosage: 0.5 DF, QOD, (HALF A TABLET ALTERNATE EVENINGS)
     Route: 065
  3. BRUFEN//IBUPROFEN [Concomitant]
     Active Substance: IBUPROFEN
     Indication: PRODUCT USED FOR UNKNOWN INDICATION
     Dosage: 200 MG, PRN
     Route: 065
  4. GILENYA [Suspect]
     Active Substance: FINGOLIMOD HYDROCHLORIDE
     Indication: MULTIPLE SCLEROSIS
     Dosage: 0.5 MG, UNK
     Route: 048
     Dates: start: 20160310
  5. MARVELON [Concomitant]
     Active Substance: DESOGESTREL\ETHINYL ESTRADIOL
     Indication: PRODUCT USED FOR UNKNOWN INDICATION
     Dosage: UNK
     Route: 065

REACTIONS (28)
  - Blood pressure fluctuation [Unknown]
  - Vertigo [Unknown]
  - Loss of consciousness [Recovering/Resolving]
  - Palpitations [Recovered/Resolved]
  - Nausea [Unknown]
  - Anxiety [Unknown]
  - Headache [Unknown]
  - Pyrexia [Unknown]
  - Infection [Unknown]
  - Feeling abnormal [Unknown]
  - Abdominal pain [Unknown]
  - Headache [Recovered/Resolved]
  - Cough [Unknown]
  - Back pain [Unknown]
  - Heart rate irregular [Unknown]
  - Pain [Unknown]
  - Dizziness [Recovered/Resolved]
  - Malaise [Unknown]
  - C-reactive protein increased [Unknown]
  - Chest discomfort [Unknown]
  - Hypotension [Recovered/Resolved]
  - Dizziness [Unknown]
  - Faeces soft [Unknown]
  - Insomnia [Unknown]
  - Nausea [Recovered/Resolved]
  - Multiple sclerosis relapse [Recovering/Resolving]
  - Ataxia [Unknown]
  - Influenza [Unknown]

NARRATIVE: CASE EVENT DATE: 20160310
